FAERS Safety Report 4602747-0 (Version None)
Quarter: 2005Q1

REPORT INFORMATION
  Report Type: 
  Country: None (occurrence: None)
  Receive Date: 20050309
  Receipt Date: 20041208
  Transmission Date: 20050727
  Serious: Yes (Death, Life-Threatening, Disabling)
  Sender: FDA-Public Use
  Company Number: DE-MERCK-0412DEU00087

PATIENT
  Age: 87 Year
  Sex: Female
  Weight: 48 kg

DRUGS (6)
  1. VIOXX [Suspect]
     Indication: ARTHRITIS
     Route: 048
     Dates: start: 20040101, end: 20041001
  2. NITRENDIPINE [Concomitant]
     Route: 065
     Dates: end: 20041010
  3. MAGNESIUM ASPARTATE AND MAGNESIUM CITRATE AND MAGNESIUM GLUTAMATE AND [Concomitant]
     Indication: MUSCLE SPASMS
     Route: 065
     Dates: end: 20041007
  4. AMITRIPTYLINE HYDROCHLORIDE [Concomitant]
     Route: 065
     Dates: end: 20041006
  5. TRAMADOL HYDROCHLORIDE [Concomitant]
     Route: 065
     Dates: end: 20041002
  6. METOCLOPRAMIDE [Concomitant]
     Indication: NAUSEA
     Route: 065
     Dates: end: 20041002

REACTIONS (8)
  - ACUTE MYOCARDIAL INFARCTION [None]
  - ACUTE PRERENAL FAILURE [None]
  - CARDIOGENIC SHOCK [None]
  - CEREBROVASCULAR ACCIDENT [None]
  - INTESTINAL INFARCTION [None]
  - MULTI-ORGAN FAILURE [None]
  - PERIPHERAL EMBOLISM [None]
  - TACHYARRHYTHMIA [None]
